FAERS Safety Report 13187571 (Version 7)
Quarter: 2017Q4

REPORT INFORMATION
  Report Type: Spontaneous
  Country: US (occurrence: US)
  Receive Date: 20170206
  Receipt Date: 20171219
  Transmission Date: 20180320
  Serious: Yes (Other)
  Sender: FDA-Public Use
  Company Number: US-PFIZER INC-2017047536

PATIENT
  Age: 72 Year
  Sex: Female
  Weight: 68.27 kg

DRUGS (23)
  1. IBRANCE [Suspect]
     Active Substance: PALBOCICLIB
     Dosage: 100 MG, DAILY
     Route: 048
     Dates: start: 20170113, end: 20170126
  2. IBRANCE [Suspect]
     Active Substance: PALBOCICLIB
     Dosage: 75 MG, CYCLIC(75 MG X 21 )
  3. FLUTICASONE PROPIONATE. [Concomitant]
     Active Substance: FLUTICASONE PROPIONATE
     Dosage: UNK, AS NEEDED
     Dates: start: 201702
  4. IBRANCE [Suspect]
     Active Substance: PALBOCICLIB
     Indication: BREAST CANCER METASTATIC
     Dosage: 125 MG, UNK
  5. RESTASIS [Concomitant]
     Active Substance: CYCLOSPORINE
     Dosage: UNK
     Dates: start: 201001
  6. GLIPIZIDE. [Concomitant]
     Active Substance: GLIPIZIDE
     Dosage: UNK
     Dates: start: 201609
  7. CALCIUM +D [Concomitant]
     Active Substance: CALCIUM\VITAMIN D
     Dosage: UNK
     Dates: start: 2000, end: 201607
  8. FASLODEX [Concomitant]
     Active Substance: FULVESTRANT
     Dosage: 500 MG, MONTHLY
     Route: 030
     Dates: start: 2017, end: 20170916
  9. NYSTATIN AND TRIAMCINOLONE [Concomitant]
     Active Substance: NYSTATIN\TRIAMCINOLONE ACETONIDE
     Dosage: UNK, AS NEEDED
     Dates: start: 201609
  10. OFLOXACIN. [Concomitant]
     Active Substance: OFLOXACIN
     Dosage: UNK
     Dates: end: 201704
  11. IBRANCE [Suspect]
     Active Substance: PALBOCICLIB
     Dosage: 100 MG, DAILY
     Route: 048
     Dates: start: 20170218
  12. FASLODEX [Concomitant]
     Active Substance: FULVESTRANT
     Indication: BREAST CANCER METASTATIC
     Dosage: UNK, MONTHLY
  13. FASLODEX [Concomitant]
     Active Substance: FULVESTRANT
     Dosage: 250 MG, UNK [250MG IN EACH BUTTOCK]
     Dates: start: 2017
  14. DICLOFENAC SODIUM. [Concomitant]
     Active Substance: DICLOFENAC SODIUM
     Dosage: UNK
     Dates: end: 2014
  15. LOSARTAN. [Concomitant]
     Active Substance: LOSARTAN
     Dosage: UNK
     Dates: start: 2000
  16. POTASSIUM [Concomitant]
     Active Substance: POTASSIUM
     Dosage: UNK
     Dates: end: 201612
  17. IBRANCE [Suspect]
     Active Substance: PALBOCICLIB
     Dosage: 75 MG, DAILY (21 DAYS)
     Dates: start: 201704
  18. IBRANCE [Suspect]
     Active Substance: PALBOCICLIB
     Dosage: 75 MG, 1X/DAY
     Route: 048
     Dates: start: 2017, end: 20171009
  19. LOVENOX [Concomitant]
     Active Substance: ENOXAPARIN SODIUM
     Dosage: UNK
     Dates: start: 201607
  20. FISH OIL [Concomitant]
     Active Substance: FISH OIL
     Dosage: UNK
     Dates: start: 2000, end: 201607
  21. FASLODEX [Concomitant]
     Active Substance: FULVESTRANT
     Dosage: UNK
     Dates: start: 201701, end: 201702
  22. NORCO [Concomitant]
     Active Substance: ACETAMINOPHEN\HYDROCODONE BITARTRATE
     Dosage: UNK
     Dates: end: 201701
  23. ACETAMINOPHEN AND CODEINE [Concomitant]
     Active Substance: ACETAMINOPHEN\CODEINE PHOSPHATE
     Dosage: UNK
     Dates: start: 201701

REACTIONS (5)
  - Platelet count increased [Unknown]
  - Haemoglobin decreased [Recovering/Resolving]
  - White blood cell count decreased [Recovered/Resolved]
  - Neoplasm progression [Not Recovered/Not Resolved]
  - Thrombocytopenia [Recovered/Resolved]

NARRATIVE: CASE EVENT DATE: 201708
